FAERS Safety Report 7292278-4 (Version None)
Quarter: 2011Q1

REPORT INFORMATION
  Report Type: 
  Country: None (occurrence: None)
  Receive Date: 20110210
  Receipt Date: 20110210
  Transmission Date: 20110831
  Serious: No
  Sender: FDA-Public Use
  Company Number: None

PATIENT
  Age: 60 Year
  Sex: Female
  Weight: 80.7403 kg

DRUGS (1)
  1. OXYCODONE 30 MG ? V IMPRINTED BLUE PILL OXYCODONE [Suspect]
     Dosage: Q8H ORAL
     Route: 048
     Dates: start: 20110126, end: 20110129

REACTIONS (4)
  - HALLUCINATION [None]
  - PALPITATIONS [None]
  - INSOMNIA [None]
  - DELUSION [None]
